FAERS Safety Report 12458919 (Version 2)
Quarter: 2016Q3

REPORT INFORMATION
  Report Type: Report from Study
  Country: GB (occurrence: GB)
  Receive Date: 20160613
  Receipt Date: 20160721
  Transmission Date: 20161109
  Serious: Yes (Death)
  Sender: FDA-Public Use
  Company Number: PHFR2016GB004765

PATIENT
  Age: 70 Year
  Sex: Male
  Weight: 101.2 kg

DRUGS (5)
  1. ENTRESTO [Suspect]
     Active Substance: SACUBITRIL\VALSARTAN
     Indication: CARDIAC FAILURE
     Dosage: 200 MG, UNK
     Route: 048
     Dates: start: 20151111
  2. DIAMORPHINE [Concomitant]
     Active Substance: DIACETYLMORPHINE
     Indication: CARDIAC FAILURE
     Dosage: 10 MG, UNK
     Route: 058
     Dates: start: 20160512
  3. METOCLOPRAMIDE. [Concomitant]
     Active Substance: METOCLOPRAMIDE
     Indication: CARDIAC FAILURE
     Dosage: 10 MG, UNK
     Route: 058
     Dates: start: 20160512
  4. MIDAZOLAM [Concomitant]
     Active Substance: MIDAZOLAM\MIDAZOLAM HYDROCHLORIDE
     Indication: CARDIAC FAILURE
     Dosage: 5 MG, UNK
     Route: 058
     Dates: start: 20160512
  5. OXYCODONE [Concomitant]
     Active Substance: OXYCODONE
     Indication: CARDIAC FAILURE
     Dosage: 20 MG, UNK
     Route: 048
     Dates: start: 20160511

REACTIONS (1)
  - Cardiac failure chronic [Fatal]

NARRATIVE: CASE EVENT DATE: 20160511
